FAERS Safety Report 4688308-6 (Version None)
Quarter: 2005Q2

REPORT INFORMATION
  Report Type: 
  Country: None (occurrence: None)
  Receive Date: 20050609
  Receipt Date: 20050530
  Transmission Date: 20051028
  Serious: Yes (Disabling)
  Sender: FDA-Public Use
  Company Number: 11367

PATIENT
  Age: 54 Year
  Sex: Female

DRUGS (5)
  1. PACLITAXEL [Suspect]
     Indication: GASTRIC CANCER
     Dosage: 260 G IV
     Route: 042
     Dates: start: 20050322, end: 20050322
  2. DEXAMETHASONE [Concomitant]
  3. CLEMASTINE [Concomitant]
  4. RANITIDINE [Concomitant]
  5. ONDANSETRON [Concomitant]

REACTIONS (4)
  - CYANOSIS [None]
  - DYSPNOEA [None]
  - LOSS OF CONSCIOUSNESS [None]
  - RESPIRATORY DISORDER [None]
